FAERS Safety Report 7434106-X (Version None)
Quarter: 2011Q2

REPORT INFORMATION
  Report Type: 
  Country: None (occurrence: None)
  Receive Date: 20110425
  Receipt Date: 20110402
  Transmission Date: 20111010
  Serious: Yes (Other)
  Sender: FDA-Public Use
  Company Number: IN-AMGEN-INDSP2011021043

PATIENT
  Sex: Male

DRUGS (2)
  1. ENBREL [Suspect]
     Indication: PSORIATIC ARTHROPATHY
     Dosage: 25 MG, 2X/WEEK
  2. ENBREL [Suspect]
     Indication: PSORIASIS

REACTIONS (4)
  - FRUSTRATION [None]
  - DRUG INEFFECTIVE [None]
  - PSORIATIC ARTHROPATHY [None]
  - PSORIASIS [None]
